FAERS Safety Report 11748413 (Version 1)
Quarter: 2015Q4

REPORT INFORMATION
  Report Type: Spontaneous
  Country: US (occurrence: US)
  Receive Date: 20151117
  Receipt Date: 20151117
  Transmission Date: 20160304
  Serious: No
  Sender: FDA-Public Use
  Company Number: US-PFIZER INC-2015384904

PATIENT
  Age: 77 Year
  Sex: Female
  Weight: 61.22 kg

DRUGS (10)
  1. MINOXIDIL. [Concomitant]
     Active Substance: MINOXIDIL
     Dosage: UNK (AS DIRECTED)
  2. TRAMADOL. [Concomitant]
     Active Substance: TRAMADOL
     Indication: PAIN
     Dosage: 50 MG, AS NEEDED (TAKE 1-2 TABLETS EVERY 8-8 HOURS)
     Route: 048
     Dates: start: 20150713
  3. METOPROLOL SUCCINATE. [Concomitant]
     Active Substance: METOPROLOL SUCCINATE
     Dosage: 100 MG, 1X/DAY (EVERY MORNING)
     Route: 048
     Dates: start: 20090330
  4. FUROSEMIDE. [Concomitant]
     Active Substance: FUROSEMIDE
     Indication: OEDEMA
     Dosage: 40 MG, AS NEEDED
     Route: 048
     Dates: start: 20090518
  5. DIGOXIN. [Concomitant]
     Active Substance: DIGOXIN
     Dosage: 125 ?G, DAILY
     Route: 048
     Dates: start: 20130709
  6. REVATIO [Suspect]
     Active Substance: SILDENAFIL CITRATE
     Indication: PULMONARY HYPERTENSION
     Dosage: 20 MG, 2X/DAY
     Route: 048
     Dates: start: 20100222
  7. GLUCOSAMINE AND CHONDROITIN [Concomitant]
     Dosage: 1 DF, 2X/DAY
     Route: 048
  8. LISINOPRIL. [Concomitant]
     Active Substance: LISINOPRIL
     Dosage: 40 MG, 1X/DAY
     Route: 048
     Dates: start: 20130326
  9. SIMVASTATIN. [Concomitant]
     Active Substance: SIMVASTATIN
     Dosage: 40 MG, 1X/DAY (WITH EVENING MEAL)
     Route: 048
     Dates: start: 20100722
  10. XARELTO [Concomitant]
     Active Substance: RIVAROXABAN
     Dosage: 20 MG, 1X/DAY
     Route: 048
     Dates: start: 20140915

REACTIONS (2)
  - Muscle spasms [Unknown]
  - Contusion [Unknown]
